FAERS Safety Report 8382804 (Version 4)
Quarter: 2012Q4

REPORT INFORMATION
  Report Type: 
  Country: US (occurrence: US)
  Receive Date: 20120201
  Receipt Date: 20120912
  Transmission Date: 20130627
  Serious: Yes (Other)
  Sender: FDA-Public Use
  Company Number: US-ROCHE-1035273

PATIENT
  Sex: Male

DRUGS (1)
  1. ACCUTANE [Suspect]
     Indication: PRODUCT USED FOR UNKNOWN INDICATION
     Route: 065
     Dates: start: 20030808

REACTIONS (6)
  - Inflammatory bowel disease [Unknown]
  - Anxiety [Unknown]
  - Arthritis [Unknown]
  - Irritable bowel syndrome [Unknown]
  - Drug hypersensitivity [Unknown]
  - Lip dry [Unknown]
